FAERS Safety Report 14037450 (Version 1)
Quarter: 2017Q4

REPORT INFORMATION
  Report Type: Spontaneous
  Country: US (occurrence: US)
  Receive Date: 20171003
  Receipt Date: 20171003
  Transmission Date: 20180321
  Serious: Yes (Other)
  Sender: FDA-Public Use
  Company Number: None

PATIENT
  Age: 41 Year
  Sex: Female
  Weight: 85.5 kg

DRUGS (1)
  1. VANCOMYCIN [Suspect]
     Active Substance: VANCOMYCIN
     Indication: PNEUMONIA BACTERIAL
     Route: 041
     Dates: start: 20170922, end: 20170922

REACTIONS (3)
  - Pruritus [None]
  - Blood pressure increased [None]
  - Flushing [None]

NARRATIVE: CASE EVENT DATE: 20170922
